FAERS Safety Report 10455139 (Version 2)
Quarter: 2014Q3

REPORT INFORMATION
  Report Type: Spontaneous
  Country: GB (occurrence: GB)
  Receive Date: 20140916
  Receipt Date: 20140929
  Transmission Date: 20150326
  Serious: Yes (Hospitalization, Other)
  Sender: FDA-Public Use
  Company Number: GB-AUROBINDO-AUR-APL-2014-09736

PATIENT
  Age: 30 Year
  Sex: Female

DRUGS (3)
  1. HALOPERIDOL. [Suspect]
     Active Substance: HALOPERIDOL
     Indication: ABNORMAL BEHAVIOUR
     Dosage: 2.5 MG, TWO TIMES A DAY
     Route: 065
  2. ACYCLOVIR                          /00587301/ [Suspect]
     Active Substance: ACYCLOVIR
     Indication: PRODUCT USED FOR UNKNOWN INDICATION
     Dosage: 750 MG, 3 TIMES A DAY
     Route: 042
  3. OLANZAPINE 10MG [Suspect]
     Active Substance: OLANZAPINE
     Indication: ABNORMAL BEHAVIOUR
     Dosage: 10 MG, TWO TIMES A DAY
     Route: 065

REACTIONS (16)
  - Pupillary disorder [Recovered/Resolved]
  - Drug effect decreased [Recovered/Resolved]
  - Lymphocytosis [Recovered/Resolved]
  - Treatment failure [Recovered/Resolved]
  - Optic nerve disorder [Recovered/Resolved]
  - Pressure of speech [Recovered/Resolved]
  - Eye pain [Recovered/Resolved]
  - CSF glucose increased [Recovered/Resolved]
  - Depressed mood [Recovered/Resolved]
  - Encephalitis autoimmune [Recovered/Resolved]
  - Central nervous system lesion [Recovered/Resolved]
  - Optic neuritis [Recovered/Resolved]
  - Sexually inappropriate behaviour [Recovered/Resolved]
  - Disinhibition [Recovered/Resolved]
  - CSF protein increased [Recovered/Resolved]
  - Adverse event [Recovered/Resolved]
